FAERS Safety Report 22238882 (Version 1)
Quarter: 2023Q2

REPORT INFORMATION
  Report Type: Spontaneous
  Country: JP (occurrence: JP)
  Receive Date: 20230421
  Receipt Date: 20230421
  Transmission Date: 20230722
  Serious: Yes (Hospitalization)
  Sender: FDA-Public Use
  Company Number: JP-UCBSA-2023019480

PATIENT
  Age: 74 Year
  Sex: Female

DRUGS (6)
  1. LEVETIRACETAM [Suspect]
     Active Substance: LEVETIRACETAM
     Indication: Epilepsy
     Dosage: 1000 MILLIGRAM, ONCE DAILY (QD)
  2. LEVETIRACETAM [Suspect]
     Active Substance: LEVETIRACETAM
     Indication: Status epilepticus
     Dosage: 3000 MILLIGRAM, ONCE DAILY (QD)
  3. LACOSAMIDE [Suspect]
     Active Substance: LACOSAMIDE
     Indication: Status epilepticus
     Dosage: 100 MILLIGRAM, ONCE DAILY (QD)
  4. FOSPHENYTOIN [Suspect]
     Active Substance: FOSPHENYTOIN
     Indication: Epilepsy
     Dosage: LOADING BOLUS
     Route: 042
  5. FOSPHENYTOIN [Suspect]
     Active Substance: FOSPHENYTOIN
     Dosage: MAINTENANCE DOSE
  6. DIAZEPAM [Suspect]
     Active Substance: DIAZEPAM
     Indication: Clonic convulsion
     Dosage: UNK

REACTIONS (2)
  - Brain tumour operation [Recovered/Resolved]
  - Multiple-drug resistance [Unknown]
